FAERS Safety Report 15135782 (Version 1)
Quarter: 2018Q3

REPORT INFORMATION
  Report Type: Spontaneous
  Country: US (occurrence: US)
  Receive Date: 20180616
  Receipt Date: 20180616
  Transmission Date: 20181010
  Serious: Yes (Disabling)
  Sender: FDA-Public Use
  Company Number: None

PATIENT
  Age: 21 Year
  Sex: Female
  Weight: 40.82 kg

DRUGS (3)
  1. WELLBUTRIN [Concomitant]
     Active Substance: BUPROPION HYDROCHLORIDE
  2. LEXAPRO [Concomitant]
     Active Substance: ESCITALOPRAM OXALATE
  3. NEXPLANON [Suspect]
     Active Substance: ETONOGESTREL
     Dates: start: 20160912

REACTIONS (4)
  - Mental impairment [None]
  - Weight decreased [None]
  - Loose tooth [None]
  - Alopecia [None]

NARRATIVE: CASE EVENT DATE: 20161011
